FAERS Safety Report 25673773 (Version 1)
Quarter: 2025Q3

REPORT INFORMATION
  Report Type: Spontaneous
  Country: CN (occurrence: CN)
  Receive Date: 20250813
  Receipt Date: 20250813
  Transmission Date: 20251021
  Serious: Yes (Other)
  Sender: BRISTOL-MYERS SQUIBB COMPANY
  Company Number: CN-BRISTOL-MYERS SQUIBB COMPANY-2025-111920

PATIENT
  Age: 36 Year
  Sex: Male
  Weight: 60 kg

DRUGS (4)
  1. OPDIVO [Suspect]
     Active Substance: NIVOLUMAB
     Indication: Hepatocellular carcinoma
     Route: 041
     Dates: start: 20250714, end: 20250714
  2. OPDIVO [Suspect]
     Active Substance: NIVOLUMAB
     Indication: Hepatic cancer metastatic
  3. YERVOY [Suspect]
     Active Substance: IPILIMUMAB
     Indication: Hepatocellular carcinoma
     Route: 041
     Dates: start: 20250714, end: 20250714
  4. YERVOY [Suspect]
     Active Substance: IPILIMUMAB
     Indication: Hepatic cancer metastatic

REACTIONS (2)
  - Myelosuppression [Unknown]
  - Off label use [Unknown]

NARRATIVE: CASE EVENT DATE: 20250714
